FAERS Safety Report 17759607 (Version 1)
Quarter: 2020Q2

REPORT INFORMATION
  Report Type: Spontaneous
  Country: SE (occurrence: SE)
  Receive Date: 20200508
  Receipt Date: 20200508
  Transmission Date: 20200714
  Serious: Yes (Other)
  Sender: FDA-Public Use
  Company Number: SE-PFIZER INC-2019199669

PATIENT
  Age: 50 Year
  Sex: Male
  Weight: 74 kg

DRUGS (2)
  1. FRAGMIN [Suspect]
     Active Substance: DALTEPARIN SODIUM
     Indication: THROMBOPHLEBITIS
     Dosage: 15000 IU, UNK
     Dates: start: 20190501, end: 20190516
  2. INNOHEP [Suspect]
     Active Substance: TINZAPARIN SODIUM
     Indication: THROMBOPHLEBITIS
     Dosage: 8000 IU, UNK
     Dates: start: 20190517

REACTIONS (4)
  - Myalgia [Recovered/Resolved]
  - Muscular weakness [Recovered/Resolved]
  - Performance status decreased [Not Recovered/Not Resolved]
  - Exercise tolerance decreased [Not Recovered/Not Resolved]

NARRATIVE: CASE EVENT DATE: 20190501
